FAERS Safety Report 6246342-9 (Version None)
Quarter: 2009Q2

REPORT INFORMATION
  Report Type: 
  Country: None (occurrence: None)
  Receive Date: 20090624
  Receipt Date: 20090624
  Transmission Date: 20091009
  Serious: Yes (Disabling)
  Sender: FDA-Public Use
  Company Number: None

PATIENT
  Age: 56 Year
  Sex: Male
  Weight: 81 kg

DRUGS (13)
  1. AMIODRAONE 200 MG [Suspect]
     Dosage: 200 MG TWICE DAILY PO
     Route: 048
     Dates: start: 20080801, end: 20081106
  2. NEXIUM [Concomitant]
  3. LANOXIN [Concomitant]
  4. PLAVIX [Concomitant]
  5. ASPIRIN [Concomitant]
  6. ZESTRIL [Concomitant]
  7. ZOCOR [Concomitant]
  8. COREG [Concomitant]
  9. LYRICA [Concomitant]
  10. PREDNISONE [Concomitant]
  11. ALDACTONE [Concomitant]
  12. LASIX [Concomitant]
  13. POTASSIUM CHLORIDE [Concomitant]

REACTIONS (2)
  - LUNG INFILTRATION [None]
  - PULMONARY TOXICITY [None]
